FAERS Safety Report 9733007 (Version 1)
Quarter: 2013Q4

REPORT INFORMATION
  Report Type: Spontaneous
  Country: FR (occurrence: FR)
  Receive Date: 20131205
  Receipt Date: 20131205
  Transmission Date: 20140711
  Serious: Yes (Other)
  Sender: FDA-Public Use
  Company Number: FR-PFIZER INC-2013344818

PATIENT
  Age: 79 Year
  Sex: Male

DRUGS (3)
  1. TRIATEC [Suspect]
     Dosage: UNK
     Route: 065
  2. PERMIXON [Concomitant]
     Indication: PROSTATIC DISORDER
     Dosage: UNK
  3. MECIR [Concomitant]
     Indication: PROSTATIC DISORDER
     Dosage: UNK

REACTIONS (2)
  - Arrhythmia [Unknown]
  - Extrasystoles [Unknown]
